FAERS Safety Report 9605817 (Version 1)
Quarter: 2013Q4

REPORT INFORMATION
  Report Type: Spontaneous
  Country: FR (occurrence: FR)
  Receive Date: 20131008
  Receipt Date: 20131008
  Transmission Date: 20140711
  Serious: Yes (Other)
  Sender: FDA-Public Use
  Company Number: FR-B.I. PHARMACEUTICALS,INC./RIDGEFIELD-2013-FF-02419FF

PATIENT
  Sex: Male

DRUGS (10)
  1. PRADAXA [Suspect]
     Indication: ATRIAL FIBRILLATION
     Dosage: 220 MG
     Route: 048
     Dates: start: 201212
  2. HEMIGOXINE [Concomitant]
  3. AMIODARONE [Concomitant]
  4. LERCANIDIPINE [Concomitant]
  5. PANTOPRAZOLE [Concomitant]
     Indication: GASTRIC ULCER
  6. LEVOTHYROX [Concomitant]
  7. SPIRIVA [Concomitant]
  8. ERCEFURYL [Concomitant]
     Indication: DIVERTICULUM
  9. DYSALFA [Concomitant]
     Indication: PROSTATITIS
  10. AVODART [Concomitant]
     Indication: PROSTATITIS

REACTIONS (5)
  - Intestinal obstruction [Recovered/Resolved]
  - Haemoglobin decreased [Not Recovered/Not Resolved]
  - Haematocrit decreased [Not Recovered/Not Resolved]
  - Haematoma [Not Recovered/Not Resolved]
  - Fatigue [Not Recovered/Not Resolved]
